FAERS Safety Report 5777813-7 (Version None)
Quarter: 2008Q2

REPORT INFORMATION
  Report Type: 
  Country: None (occurrence: None)
  Receive Date: 20080618
  Receipt Date: 20080606
  Transmission Date: 20081010
  Serious: Yes (Other)
  Sender: FDA-Public Use
  Company Number: CA-PFIZER INC-2008049175

PATIENT
  Age: 35 Year
  Sex: Female

DRUGS (8)
  1. LYRICA [Suspect]
     Indication: PAIN
     Route: 048
  2. EPIVAL [Interacting]
     Indication: EPILEPSY
  3. ZYPREXA [Concomitant]
  4. RIVOTRIL [Concomitant]
  5. SEROQUEL [Concomitant]
  6. NAPROSYN [Concomitant]
  7. PANTOPRAZOLE SODIUM [Concomitant]
  8. PREMARIN [Concomitant]

REACTIONS (3)
  - ANTICONVULSANT DRUG LEVEL DECREASED [None]
  - CONVULSION [None]
  - DRUG INTERACTION [None]
